FAERS Safety Report 6453794-8 (Version None)
Quarter: 2009Q4

REPORT INFORMATION
  Report Type: 
  Country: None (occurrence: None)
  Receive Date: 20091124
  Receipt Date: 20091119
  Transmission Date: 20100525
  Serious: Yes (Death, Hospitalization)
  Sender: FDA-Public Use
  Company Number: US-EISAI INC.-M7002-00630-CLI-US

PATIENT
  Sex: Female
  Weight: 127 kg

DRUGS (13)
  1. ONTAK [Suspect]
     Indication: PERIPHERAL T-CELL LYMPHOMA UNSPECIFIED
     Route: 041
     Dates: end: 20071213
  2. CYCLOPHOSPHAMIDE [Concomitant]
     Indication: PERIPHERAL T-CELL LYMPHOMA UNSPECIFIED
     Route: 041
     Dates: end: 20071214
  3. DOXORUBICIN HCL [Concomitant]
     Indication: PERIPHERAL T-CELL LYMPHOMA UNSPECIFIED
     Route: 041
     Dates: end: 20071214
  4. VINCRISTINE [Concomitant]
     Indication: PERIPHERAL T-CELL LYMPHOMA UNSPECIFIED
     Route: 041
     Dates: end: 20071214
  5. PREDNISONE [Concomitant]
     Indication: PERIPHERAL T-CELL LYMPHOMA UNSPECIFIED
     Route: 048
     Dates: end: 20071217
  6. NEULASTA [Concomitant]
     Route: 058
     Dates: start: 20071215, end: 20071215
  7. NORGESTIMATE [Concomitant]
  8. ETINOL [Concomitant]
  9. PRILOSEC [Concomitant]
     Route: 048
  10. ALLOPURINOL [Concomitant]
  11. COMPAZINE [Concomitant]
     Route: 048
  12. ATARAX [Concomitant]
     Route: 048
  13. HYDROMORPHONE HCL [Concomitant]
     Route: 048

REACTIONS (3)
  - CARDIO-RESPIRATORY ARREST [None]
  - PAIN [None]
  - TACHYCARDIA [None]
